FAERS Safety Report 4621119-6 (Version None)
Quarter: 2005Q1

REPORT INFORMATION
  Report Type: 
  Country: None (occurrence: None)
  Receive Date: 20050325
  Receipt Date: 20050315
  Transmission Date: 20050727
  Serious: Yes (Other)
  Sender: FDA-Public Use
  Company Number: 2005-00526

PATIENT
  Age: 68 Year
  Sex: Male

DRUGS (5)
  1. VELCADE [Suspect]
     Indication: MULTIPLE MYELOMA
     Dosage: 1.30 MG/M2, INTRAVENOUS
     Route: 042
     Dates: start: 20040830
  2. ZOMETA [Concomitant]
  3. VITAMIN B12 [Concomitant]
  4. NEORECORMON (EPOETIN BETA) [Concomitant]
  5. PENTAMIDINE (PENTAMIDINE) [Concomitant]

REACTIONS (1)
  - PERIORBITAL OEDEMA [None]
